FAERS Safety Report 17667631 (Version 2)
Quarter: 2020Q2

REPORT INFORMATION
  Report Type: Spontaneous
  Country: AU (occurrence: AU)
  Receive Date: 20200414
  Receipt Date: 20200504
  Transmission Date: 20200713
  Serious: Yes (Other)
  Sender: FDA-Public Use
  Company Number: AU-NAPPMUNDI-GBR-2020-0076242

PATIENT
  Age: 43 Year
  Sex: Female

DRUGS (2)
  1. OXYCONTIN [Suspect]
     Active Substance: OXYCODONE HYDROCHLORIDE
     Indication: BACK INJURY
     Dosage: 20 MG, BID
     Route: 065
     Dates: start: 201205
  2. DUCENE [Concomitant]
     Active Substance: DIAZEPAM
     Indication: BACK INJURY
     Dosage: 5 MG, BID
     Route: 065
     Dates: start: 201205

REACTIONS (14)
  - Iron deficiency [Unknown]
  - Feeding disorder [Unknown]
  - Constipation [Unknown]
  - Seizure [Unknown]
  - Altered state of consciousness [Unknown]
  - Faeces discoloured [Unknown]
  - Loss of consciousness [Unknown]
  - Somnolence [Unknown]
  - Abdominal pain upper [Unknown]
  - Suicidal ideation [Unknown]
  - Sedation complication [Unknown]
  - Dreamy state [Unknown]
  - Decreased appetite [Unknown]
  - Food aversion [Unknown]
